FAERS Safety Report 12721011 (Version 1)
Quarter: 2016Q3

REPORT INFORMATION
  Report Type: Other
  Country: US (occurrence: US)
  Receive Date: 20160907
  Receipt Date: 20160907
  Transmission Date: 20161109
  Serious: No
  Sender: FDA-Public Use
  Company Number: US-COL_21384_2015

PATIENT
  Sex: Female

DRUGS (2)
  1. COLGATE TOTAL FRESH MINT STRIPE [Suspect]
     Active Substance: SODIUM FLUORIDE\TRICLOSAN
     Indication: PRODUCT USED FOR UNKNOWN INDICATION
     Dosage: A PEA SIZE AMOUNT/BID/
     Route: 048
     Dates: start: 20151109, end: 201511
  2. COLGATE TOTAL FRESH MINT STRIPE [Suspect]
     Active Substance: SODIUM FLUORIDE\TRICLOSAN
     Dosage: A PEA SIZE AMOUNT/BID/
     Route: 048
     Dates: start: 201511, end: 20151118

REACTIONS (1)
  - Hypoaesthesia oral [Recovered/Resolved]

NARRATIVE: CASE EVENT DATE: 20151109
